FAERS Safety Report 7396812-5 (Version None)
Quarter: 2011Q2

REPORT INFORMATION
  Report Type: 
  Country: None (occurrence: None)
  Receive Date: 20110406
  Receipt Date: 20101006
  Transmission Date: 20111010
  Serious: Yes (Hospitalization, Other)
  Sender: FDA-Public Use
  Company Number: US-BAYER-200942940NA

PATIENT
  Sex: Female
  Weight: 83.9 kg

DRUGS (12)
  1. SYNTHROID [Concomitant]
     Indication: HYPOTHYROIDISM
     Dosage: 100 MCG/24HR, QD
     Dates: start: 20040308
  2. AVANDAMET [Concomitant]
     Dosage: UNK UNK, QD
  3. YASMIN [Suspect]
     Indication: MENORRHAGIA
  4. PENICILLIN [Concomitant]
  5. LEVOTHYROXINE [Concomitant]
  6. PROVENTIL [Concomitant]
     Dosage: UNK UNK, PRN
     Dates: start: 19950101
  7. METFORMIN [Concomitant]
     Indication: DIABETES MELLITUS
     Dosage: UNK
     Dates: start: 20100201
  8. UNCODEABLE ^UNCLASSIFIABLE^ [Concomitant]
     Dosage: 10 MG, QD
  9. COZAAR [Concomitant]
     Dosage: 100 MG, QD
  10. YASMIN [Suspect]
     Indication: CONTRACEPTION
     Dosage: UNK
     Dates: start: 20040201, end: 20040301
  11. ALLEGRA [Concomitant]
     Dosage: UNK
     Dates: start: 20040101, end: 20070101
  12. ASPIRIN [Concomitant]
     Dosage: 325 MG, QD

REACTIONS (3)
  - INJURY [None]
  - PULMONARY EMBOLISM [None]
  - DEEP VEIN THROMBOSIS [None]
